FAERS Safety Report 20783781 (Version 5)
Quarter: 2022Q3

REPORT INFORMATION
  Report Type: Spontaneous
  Country: US (occurrence: US)
  Receive Date: 20220504
  Receipt Date: 20220819
  Transmission Date: 20221027
  Serious: Yes (Hospitalization, Other)
  Sender: FDA-Public Use
  Company Number: US-BAYER-2022A060220

PATIENT
  Age: 62 Year
  Sex: Male

DRUGS (3)
  1. KOVALTRY [Suspect]
     Active Substance: ANTIHEMOPHILIC FACTOR, HUMAN RECOMBINANT
     Dosage: 534 IU, TIW
  2. KOVALTRY [Suspect]
     Active Substance: ANTIHEMOPHILIC FACTOR, HUMAN RECOMBINANT
     Dosage: UNK, PRN
  3. KOVALTRY [Suspect]
     Active Substance: ANTIHEMOPHILIC FACTOR, HUMAN RECOMBINANT
     Dosage: HAS BEEN DOSING EVERYDAY SINCE HOSPITAL DISCHARGE FOR HIP SURGERY

REACTIONS (5)
  - Haemarthrosis [None]
  - Haemarthrosis [None]
  - Hip arthroplasty [None]
  - Product availability issue [None]
  - Product dose omission issue [None]

NARRATIVE: CASE EVENT DATE: 20220423
